FAERS Safety Report 20989532 (Version 3)
Quarter: 2022Q3

REPORT INFORMATION
  Report Type: Spontaneous
  Country: FR (occurrence: FR)
  Receive Date: 20220621
  Receipt Date: 20220811
  Transmission Date: 20221027
  Serious: Yes (Other)
  Sender: FDA-Public Use
  Company Number: FR-BRISTOL-MYERS SQUIBB COMPANY-2022-026493

PATIENT
  Sex: Male
  Weight: 78 kg

DRUGS (8)
  1. NULOJIX [Suspect]
     Active Substance: BELATACEPT
     Indication: Renal transplant
     Dosage: INITIATION REGIMEN: 5 MG/KG EVERY 2 WEEKS ON 5 OCCASIONS (S0, S2, S4, S6, S8)
     Route: 065
     Dates: start: 202011
  2. NULOJIX [Suspect]
     Active Substance: BELATACEPT
     Dosage: MAINTENANCE REGIMEN: 5 MG/KG EVERY 4 WEEKS FROM S12 ONWARDS
     Route: 065
  3. NULOJIX [Suspect]
     Active Substance: BELATACEPT
     Dosage: DAY 1
     Route: 065
     Dates: start: 20220425
  4. NULOJIX [Suspect]
     Active Substance: BELATACEPT
     Dosage: DAY15
     Route: 065
     Dates: start: 20220509
  5. NULOJIX [Suspect]
     Active Substance: BELATACEPT
     Dosage: DAY 29
     Route: 065
     Dates: start: 20220523
  6. NULOJIX [Suspect]
     Active Substance: BELATACEPT
     Dosage: DAY 43
     Route: 065
     Dates: start: 20220606
  7. NULOJIX [Suspect]
     Active Substance: BELATACEPT
     Dosage: DAY 57
     Route: 065
     Dates: start: 20220620
  8. NULOJIX [Suspect]
     Active Substance: BELATACEPT
     Dosage: MONTH 3
     Route: 065
     Dates: start: 20220718

REACTIONS (5)
  - Deafness bilateral [Recovered/Resolved]
  - Tremor [Unknown]
  - Insomnia [Unknown]
  - Nervous system disorder [Recovered/Resolved]
  - Intentional product use issue [Unknown]
